FAERS Safety Report 24993294 (Version 1)
Quarter: 2025Q1

REPORT INFORMATION
  Report Type: Spontaneous
  Country: NL (occurrence: NL)
  Receive Date: 20250221
  Receipt Date: 20250221
  Transmission Date: 20250409
  Serious: Yes (Life-Threatening, Other)
  Sender: JUBILANT
  Company Number: None

PATIENT
  Age: 49 Year
  Sex: Female
  Weight: 70.4 kg

DRUGS (1)
  1. OLANZAPINE [Suspect]
     Active Substance: OLANZAPINE
     Indication: Mania
     Dosage: 30 MG, ONCE PER DAY
     Route: 048
     Dates: start: 20250209

REACTIONS (2)
  - Dystonia [Not Recovered/Not Resolved]
  - Trismus [Not Recovered/Not Resolved]
